FAERS Safety Report 9160456 (Version 1)
Quarter: 2013Q1

REPORT INFORMATION
  Report Type: Spontaneous
  Country: IT (occurrence: None)
  Receive Date: 20130220
  Receipt Date: 20130220
  Transmission Date: 20140127
  Serious: Yes (Hospitalization)
  Sender: FDA-Public Use
  Company Number: AUR-APL-2013-01449

PATIENT
  Sex: Male

DRUGS (1)
  1. BISOPROLOL [Suspect]

REACTIONS (1)
  - Bradyarrhythmia [None]
